FAERS Safety Report 21892447 (Version 2)
Quarter: 2023Q1

REPORT INFORMATION
  Report Type: Spontaneous
  Country: NL (occurrence: NL)
  Receive Date: 20230120
  Receipt Date: 20230317
  Transmission Date: 20230418
  Serious: Yes (Other)
  Sender: FDA-Public Use
  Company Number: NL-BAYER-2022P002203

PATIENT
  Age: 32 Year
  Sex: Female
  Weight: 96 kg

DRUGS (1)
  1. MIRENA [Suspect]
     Active Substance: LEVONORGESTREL
     Dosage: 20?G/DAY
     Route: 015
     Dates: start: 20210323

REACTIONS (4)
  - Pregnancy with contraceptive device [Recovered/Resolved]
  - Gestational diabetes [Recovered/Resolved]
  - Device dislocation [None]
  - Drug ineffective [None]

NARRATIVE: CASE EVENT DATE: 20220420
